FAERS Safety Report 9861232 (Version 1)
Quarter: 2014Q1

REPORT INFORMATION
  Report Type: Spontaneous
  Country: US (occurrence: US)
  Receive Date: 20140202
  Receipt Date: 20140202
  Transmission Date: 20141002
  Serious: No
  Sender: FDA-Public Use
  Company Number: US-ALLERGAN-1304437US

PATIENT
  Age: 48 Year
  Sex: Male

DRUGS (1)
  1. BOTOX [Suspect]
     Indication: MUSCLE SPASMS
     Dosage: 200 UNITS, SINGLE
     Route: 030
     Dates: start: 20121106, end: 20121106

REACTIONS (5)
  - Injection site reaction [Unknown]
  - Off label use [Unknown]
  - Muscular weakness [Recovered/Resolved]
  - Dyspnoea [Recovering/Resolving]
  - Dyspnoea [Unknown]
